FAERS Safety Report 18371916 (Version 1)
Quarter: 2020Q4

REPORT INFORMATION
  Report Type: Spontaneous
  Country: US (occurrence: US)
  Receive Date: 20201012
  Receipt Date: 20201012
  Transmission Date: 20210114
  Serious: Yes (Other)
  Sender: FDA-Public Use
  Company Number: US-BAYER-2020-213162

PATIENT
  Age: 78 Year
  Sex: Female

DRUGS (3)
  1. ALKA-SELTZER PLUS SEVERE SINUS COLD AND COUGH LIQUID GELS [Suspect]
     Active Substance: ACETAMINOPHEN\DEXTROMETHORPHAN HYDROBROMIDE\GUAIFENESIN\PHENYLEPHRINE HYDROCHLORIDE
     Indication: HYPERSENSITIVITY
     Dosage: LABEL DIRECTIONS DOSE
     Route: 048
     Dates: start: 20200929, end: 20200929
  2. FISH OIL [Concomitant]
     Active Substance: FISH OIL
  3. ALKA-SELTZER PLUS SEVERE SINUS COLD AND COUGH LIQUID GELS [Suspect]
     Active Substance: ACETAMINOPHEN\DEXTROMETHORPHAN HYDROBROMIDE\GUAIFENESIN\PHENYLEPHRINE HYDROCHLORIDE
     Indication: NASOPHARYNGITIS

REACTIONS (1)
  - Foreign body in throat [Recovered/Resolved]

NARRATIVE: CASE EVENT DATE: 20200929
